FAERS Safety Report 23270211 (Version 2)
Quarter: 2024Q2

REPORT INFORMATION
  Report Type: Spontaneous
  Country: JP (occurrence: JP)
  Receive Date: 20231207
  Receipt Date: 20240509
  Transmission Date: 20240716
  Serious: Yes (Hospitalization)
  Sender: FDA-Public Use
  Company Number: JP-CHUGAI-2023026450

PATIENT
  Age: 61 Year
  Sex: Female

DRUGS (1)
  1. ROZLYTREK [Suspect]
     Active Substance: ENTRECTINIB
     Indication: Non-small cell lung cancer
     Route: 065

REACTIONS (7)
  - COVID-19 [Recovering/Resolving]
  - Swelling face [Unknown]
  - Wheezing [Unknown]
  - Nausea [Recovering/Resolving]
  - Palpitations [Recovering/Resolving]
  - Dizziness [Not Recovered/Not Resolved]
  - Thrombophlebitis migrans [Unknown]

NARRATIVE: CASE EVENT DATE: 20230101
